FAERS Safety Report 9401043 (Version 2)
Quarter: 2013Q3

REPORT INFORMATION
  Report Type: Spontaneous
  Country: US (occurrence: US)
  Receive Date: 20130715
  Receipt Date: 20130820
  Transmission Date: 20140515
  Serious: No
  Sender: FDA-Public Use
  Company Number: US-B.I. PHARMACEUTICALS,INC./RIDGEFIELD-2013-BI-20233BP

PATIENT
  Age: 62 Year
  Sex: Female

DRUGS (2)
  1. SPIRIVA [Suspect]
     Indication: BRONCHITIS CHRONIC
     Dosage: 18 MCG
     Route: 055
     Dates: start: 2008
  2. PROAIR [Concomitant]
     Route: 055

REACTIONS (15)
  - Sputum discoloured [Not Recovered/Not Resolved]
  - Dyspnoea [Not Recovered/Not Resolved]
  - Cough [Not Recovered/Not Resolved]
  - Urinary incontinence [Not Recovered/Not Resolved]
  - Dry mouth [Not Recovered/Not Resolved]
  - Sinus congestion [Not Recovered/Not Resolved]
  - Thirst [Not Recovered/Not Resolved]
  - Dysphagia [Unknown]
  - Eye pain [Unknown]
  - Vision blurred [Unknown]
  - Upper respiratory tract congestion [Unknown]
  - Dyspepsia [Unknown]
  - Rhinorrhoea [Unknown]
  - Chest pain [Unknown]
  - Constipation [Unknown]
